FAERS Safety Report 7731182-1 (Version None)
Quarter: 2011Q3

REPORT INFORMATION
  Report Type: 
  Country: None (occurrence: None)
  Receive Date: 20110906
  Receipt Date: 20110829
  Transmission Date: 20111222
  Serious: Yes (Hospitalization)
  Sender: FDA-Public Use
  Company Number: PHHY2011TR76922

PATIENT
  Age: 7 Year
  Sex: Female

DRUGS (1)
  1. ISONIAZID [Suspect]
     Dosage: 2100 MG (105 MG/KG)

REACTIONS (21)
  - BLOOD PH INCREASED [None]
  - HYPERCAPNIA [None]
  - BODY TEMPERATURE DECREASED [None]
  - GENERAL PHYSICAL CONDITION ABNORMAL [None]
  - TACHYPNOEA [None]
  - DYSPNOEA [None]
  - PO2 INCREASED [None]
  - RESPIRATORY RATE INCREASED [None]
  - BLOOD PRESSURE DIASTOLIC DECREASED [None]
  - TACHYCARDIA [None]
  - METABOLIC ACIDOSIS [None]
  - HEART RATE INCREASED [None]
  - RESPIRATORY FAILURE [None]
  - COMA SCALE ABNORMAL [None]
  - TOXICITY TO VARIOUS AGENTS [None]
  - CONVULSION [None]
  - LOSS OF CONSCIOUSNESS [None]
  - BRAIN OEDEMA [None]
  - BINOCULAR EYE MOVEMENT DISORDER [None]
  - HYPERREFLEXIA [None]
  - WHITE BLOOD CELL COUNT INCREASED [None]
